FAERS Safety Report 7307534 (Version 2)
Quarter: 2013Q4

REPORT INFORMATION
  Report Type: Spontaneous
  Country: AU (occurrence: AU)
  Receive Date: 20100306
  Receipt Date: 20131224
  Transmission Date: 20140711
  Serious: No
  Sender: FDA-Public Use
  Company Number: AU-JNJFOC-20100210481

PATIENT
  Sex: Male

DRUGS (1)
  1. DUROGESIC [Suspect]
     Indication: OSTEOARTHRITIS
     Route: 062

REACTIONS (2)
  - Inappropriate schedule of drug administration [Unknown]
  - Product adhesion issue [Unknown]
